FAERS Safety Report 9355224 (Version 1)
Quarter: 2013Q2

REPORT INFORMATION
  Report Type: Spontaneous
  Country: US (occurrence: None)
  Receive Date: 20130618
  Receipt Date: 20130618
  Transmission Date: 20140414
  Serious: Yes (Other)
  Sender: FDA-Public Use
  Company Number: None

PATIENT
  Age: 14 Year
  Sex: Male
  Weight: 51.26 kg

DRUGS (5)
  1. CYMBALTA [Suspect]
     Indication: DEPRESSION
     Dosage: ONE CAPSULE  ONCE DAILY  BY MOUTH
     Route: 048
     Dates: start: 20130524, end: 20130601
  2. FISH OIL SUPPLEMENTS [Concomitant]
  3. MULTI-VITAMIN [Concomitant]
  4. BENADRYL [Concomitant]
  5. CORTISONE CREAM INTENSIVE HEALING [Concomitant]

REACTIONS (3)
  - Urticaria [None]
  - Hypersensitivity [None]
  - Dermatitis contact [None]
